FAERS Safety Report 8841633 (Version 2)
Quarter: 2012Q4

REPORT INFORMATION
  Report Type: 
  Country: DE (occurrence: DE)
  Receive Date: 20121015
  Receipt Date: 20121119
  Transmission Date: 20130627
  Serious: Yes (Other)
  Sender: FDA-Public Use
  Company Number: DE-ASTRAZENECA-2012SE77050

PATIENT
  Sex: Male

DRUGS (4)
  1. BRILIQUE [Suspect]
     Route: 048
     Dates: start: 201205
  2. JANUVA [Concomitant]
  3. METOHEXAL [Concomitant]
     Route: 048
  4. DIGIMERCK [Concomitant]

REACTIONS (3)
  - Heart rate decreased [Not Recovered/Not Resolved]
  - International normalised ratio increased [Recovered/Resolved]
  - Dyspnoea [Not Recovered/Not Resolved]
